FAERS Safety Report 12080173 (Version 1)
Quarter: 2016Q1

REPORT INFORMATION
  Report Type: Spontaneous
  Country: US (occurrence: US)
  Receive Date: 20160216
  Receipt Date: 20160216
  Transmission Date: 20160526
  Serious: No
  Sender: FDA-Public Use
  Company Number: US-GLAXOSMITHKLINE-US2016018814

PATIENT
  Age: 47 Year
  Sex: Female

DRUGS (1)
  1. SUMATRIPTAN TABLET [Suspect]
     Active Substance: SUMATRIPTAN
     Indication: MIGRAINE
     Dosage: 100 MG, PRN
     Route: 048
     Dates: start: 2011

REACTIONS (1)
  - Drug ineffective [Recovering/Resolving]
